FAERS Safety Report 5893737-9 (Version None)
Quarter: 2008Q3

REPORT INFORMATION
  Report Type: 
  Country: None (occurrence: None)
  Receive Date: 20080918
  Receipt Date: 20080904
  Transmission Date: 20090109
  Serious: Yes (Life-Threatening)
  Sender: FDA-Public Use
  Company Number: 004321

PATIENT
  Age: 57 Year
  Sex: Female

DRUGS (7)
  1. BUSULFEX [Suspect]
     Indication: STEM CELL TRANSPLANT
     Dosage: 160 MG, DAILY DOSE INTRAVENOUS
     Route: 042
     Dates: start: 20070201, end: 20070202
  2. FLUDARABINE PHOSPHATE [Concomitant]
  3. ANTITHYMOCYTE IMMUNOGLOBULIN (ANTITHYMOCYTE IMMUNOGLOBULIN) [Concomitant]
  4. CYCLOSPORINE [Concomitant]
  5. METHOTREXATE [Concomitant]
  6. LEUCOVORIN CALCIUM [Concomitant]
  7. FILGRASTIM (FILGRASTIM) [Concomitant]

REACTIONS (10)
  - ACUTE GRAFT VERSUS HOST DISEASE [None]
  - ANOREXIA [None]
  - CANDIDA SEPSIS [None]
  - CYTOMEGALOVIRUS VIRAEMIA [None]
  - DISSEMINATED INTRAVASCULAR COAGULATION [None]
  - HISTIOCYTOSIS HAEMATOPHAGIC [None]
  - NAUSEA [None]
  - STEM CELL TRANSPLANT [None]
  - STOMATITIS [None]
  - VOMITING [None]
